FAERS Safety Report 7515638-2 (Version None)
Quarter: 2011Q2

REPORT INFORMATION
  Report Type: 
  Country: None (occurrence: None)
  Receive Date: 20110601
  Receipt Date: 20100719
  Transmission Date: 20111010
  Serious: No
  Sender: FDA-Public Use
  Company Number: US-PFIZER INC-2010054376

PATIENT
  Age: 38 Year
  Sex: Male

DRUGS (2)
  1. CHANTIX [Suspect]
     Indication: SMOKING CESSATION THERAPY
     Dosage: 1 MG, UNK
     Route: 048
     Dates: start: 20091113
  2. OMEGA-3 TRIGLYCERIDES [Concomitant]
     Dosage: 1 G, UNK

REACTIONS (1)
  - ABNORMAL DREAMS [None]
